FAERS Safety Report 9832189 (Version 1)
Quarter: 2014Q1

REPORT INFORMATION
  Report Type: Spontaneous
  Country: US (occurrence: US)
  Receive Date: 20140121
  Receipt Date: 20140121
  Transmission Date: 20141002
  Serious: No
  Sender: FDA-Public Use
  Company Number: US-009507513-1401USA002815

PATIENT
  Age: 24 Year
  Sex: Female

DRUGS (5)
  1. ISENTRESS [Suspect]
     Dosage: TOTAL DAILY DOSE: 400
     Route: 048
  2. ABACAVIR SULFATE\LAMIVUDINE [Suspect]
     Dosage: TOTAL DAILY DOSE: 1
     Route: 048
  3. RILPIVIRINE [Suspect]
     Dosage: TOTAL DAILY DOSE: 25
     Route: 048
  4. ZIDOVUDINE [Suspect]
     Dosage: TOTAL DAILY DOSE: 1
     Route: 042
  5. ZIDOVUDINE [Suspect]
     Dosage: TOTAL DAILY DOSE: 2
     Route: 042

REACTIONS (1)
  - Exposure during pregnancy [Recovered/Resolved]
